FAERS Safety Report 13446160 (Version 2)
Quarter: 2017Q2

REPORT INFORMATION
  Report Type: Report from Study
  Country: None (occurrence: US)
  Receive Date: 20170417
  Receipt Date: 20170419
  Transmission Date: 20170830
  Serious: Yes (Other)
  Sender: FDA-Public Use
  Company Number: US-ABBVIE-17K-163-1940069-00

PATIENT
  Age: 40 Year
  Sex: Male

DRUGS (1)
  1. HUMIRA [Suspect]
     Active Substance: ADALIMUMAB
     Indication: ANKYLOSING SPONDYLITIS
     Route: 058
     Dates: start: 20170201, end: 20170301

REACTIONS (5)
  - Arthroscopy [Recovered/Resolved]
  - Upper respiratory tract infection [Recovering/Resolving]
  - Sinusitis [Unknown]
  - Influenza like illness [Unknown]
  - Post procedural complication [Unknown]

NARRATIVE: CASE EVENT DATE: 2017
